FAERS Safety Report 8468808-3 (Version None)
Quarter: 2012Q2

REPORT INFORMATION
  Report Type: 
  Country: None (occurrence: None)
  Receive Date: 20120621
  Receipt Date: 20120621
  Transmission Date: 20120825
  Serious: Yes (Other)
  Sender: FDA-Public Use
  Company Number: None

PATIENT
  Sex: Female

DRUGS (1)
  1. XOLAIR [Suspect]
     Dosage: 300MG INJECTABLE EVERY MONTH SUBCUTANEOUS 057
     Route: 058
     Dates: start: 20110901, end: 20120601

REACTIONS (1)
  - CONTUSION [None]
